FAERS Safety Report 6203771-7 (Version None)
Quarter: 2009Q2

REPORT INFORMATION
  Report Type: 
  Country: None (occurrence: None)
  Receive Date: 20090526
  Receipt Date: 20090526
  Transmission Date: 20091009
  Serious: No
  Sender: FDA-Public Use
  Company Number: None

PATIENT
  Age: 46 Year
  Sex: Female
  Weight: 90.7194 kg

DRUGS (2)
  1. CYMBALTA [Suspect]
     Indication: DEPRESSION
     Dates: start: 20080201, end: 20090421
  2. CYMBALTA [Suspect]
     Indication: SEASONAL AFFECTIVE DISORDER
     Dates: start: 20080201, end: 20090421

REACTIONS (8)
  - ASTHENIA [None]
  - DISORIENTATION [None]
  - FEELING ABNORMAL [None]
  - HYPOAESTHESIA [None]
  - NAUSEA [None]
  - PAIN [None]
  - PARAESTHESIA [None]
  - WITHDRAWAL SYNDROME [None]
